FAERS Safety Report 7249932-X (Version None)
Quarter: 2011Q1

REPORT INFORMATION
  Report Type: 
  Country: None (occurrence: None)
  Receive Date: 20110128
  Receipt Date: 20100915
  Transmission Date: 20110831
  Serious: No
  Sender: FDA-Public Use
  Company Number: A0882340A

PATIENT

DRUGS (1)
  1. WELLBUTRIN [Suspect]
     Indication: SMOKING CESSATION THERAPY
     Route: 048
     Dates: start: 20050101

REACTIONS (4)
  - EX-TOBACCO USER [None]
  - MALAISE [None]
  - TOBACCO USER [None]
  - WEIGHT DECREASED [None]
